FAERS Safety Report 5317330-1 (Version None)
Quarter: 2007Q2

REPORT INFORMATION
  Report Type: 
  Country: None (occurrence: None)
  Receive Date: 20070504
  Receipt Date: 20070423
  Transmission Date: 20071010
  Serious: Yes (Disabling, Other)
  Sender: FDA-Public Use
  Company Number: US-PFIZER INC-2007034109

PATIENT
  Sex: Female
  Weight: 81.818 kg

DRUGS (7)
  1. CHANTIX [Suspect]
     Indication: SMOKING CESSATION THERAPY
  2. LIPITOR [Suspect]
     Indication: BLOOD CHOLESTEROL INCREASED
  3. CODEINE SUL TAB [Suspect]
  4. CHOLESTEROL [Suspect]
     Indication: BLOOD CHOLESTEROL INCREASED
  5. SOMA [Concomitant]
     Indication: MUSCLE RELAXANT THERAPY
  6. TYLENOL [Concomitant]
  7. VITAMINS [Concomitant]

REACTIONS (10)
  - ABASIA [None]
  - ANGIOPATHY [None]
  - ARTHRALGIA [None]
  - CHEST PAIN [None]
  - DYSPNOEA [None]
  - HEADACHE [None]
  - HEART RATE INCREASED [None]
  - HYPERSENSITIVITY [None]
  - INSOMNIA [None]
  - MYALGIA [None]
